FAERS Safety Report 19259418 (Version 1)
Quarter: 2021Q2

REPORT INFORMATION
  Report Type: Spontaneous
  Country: NL (occurrence: NL)
  Receive Date: 20210514
  Receipt Date: 20210514
  Transmission Date: 20210717
  Serious: Yes (Death, Other)
  Sender: FDA-Public Use
  Company Number: NL-BAUSCH-BL-2021-016053

PATIENT
  Sex: Female

DRUGS (6)
  1. MOVICOL [Suspect]
     Active Substance: POLYETHYLENE GLYCOL 3350\POTASSIUM CHLORIDE\SODIUM BICARBONATE\SODIUM CHLORIDE
     Indication: CONSTIPATION
     Dosage: DOSE: AS REQUIRED
     Route: 065
  2. OXYCODON [Suspect]
     Active Substance: OXYCODONE
     Indication: PRODUCT USED FOR UNKNOWN INDICATION
     Route: 065
     Dates: start: 20191213
  3. PREDNISOLONE. [Suspect]
     Active Substance: PREDNISOLONE
     Indication: PRODUCT USED FOR UNKNOWN INDICATION
     Route: 065
  4. MORFINE [Suspect]
     Active Substance: MORPHINE
     Indication: PAIN
     Dosage: DOSE: ONCE
     Route: 065
     Dates: start: 20191214
  5. MORFINE [Suspect]
     Active Substance: MORPHINE
     Indication: ANALGESIC THERAPY
     Route: 058
     Dates: start: 201912
  6. COLCHICINE. [Suspect]
     Active Substance: COLCHICINE
     Indication: GOUT
     Route: 065
     Dates: start: 201911, end: 2019

REACTIONS (17)
  - Ill-defined disorder [Unknown]
  - Dysphagia [Unknown]
  - Dizziness [Unknown]
  - Lethargy [Unknown]
  - Asthenia [Not Recovered/Not Resolved]
  - Incontinence [Recovering/Resolving]
  - Weight decreased [Unknown]
  - Unevaluable event [Unknown]
  - Off label use [Unknown]
  - Death [Fatal]
  - Condition aggravated [Not Recovered/Not Resolved]
  - Diet refusal [Unknown]
  - Diarrhoea [Recovering/Resolving]
  - Pain in extremity [Unknown]
  - Feeling abnormal [Unknown]
  - General physical health deterioration [Not Recovered/Not Resolved]
  - Defaecation disorder [Recovering/Resolving]

NARRATIVE: CASE EVENT DATE: 2019
